FAERS Safety Report 11630145 (Version 2)
Quarter: 2017Q3

REPORT INFORMATION
  Report Type: Spontaneous
  Country: IT (occurrence: JP)
  Receive Date: 20151014
  Receipt Date: 20170711
  Transmission Date: 20171127
  Serious: Yes (Death, Other)
  Sender: FDA-Public Use
  Company Number: IT-SIGMA-TAU US-2015STPI000645

PATIENT
  Age: 62 Year
  Sex: Male

DRUGS (22)
  1. LEVOCARNITINE. [Suspect]
     Active Substance: LEVOCARNITINE
     Indication: PRODUCT USED FOR UNKNOWN INDICATION
     Dosage: 2000 MG, X1
     Route: 042
     Dates: start: 20140911, end: 20140911
  2. LEVOCARNITINE. [Suspect]
     Active Substance: LEVOCARNITINE
     Dosage: 6000 MG, QD
     Route: 042
     Dates: start: 20140912, end: 20140919
  3. MEROPENEM. [Concomitant]
     Active Substance: MEROPENEM
     Indication: PRODUCT USED FOR UNKNOWN INDICATION
     Route: 065
     Dates: start: 20140914, end: 20140924
  4. HEPARIN SODIUM. [Concomitant]
     Active Substance: HEPARIN SODIUM
  5. NICARDIPINE HYDROCHLORIDE. [Concomitant]
     Active Substance: NICARDIPINE HYDROCHLORIDE
  6. GABEXATE MESILATE [Concomitant]
     Active Substance: GABEXATE MESYLATE
     Indication: PRODUCT USED FOR UNKNOWN INDICATION
     Dosage: UNK, OTHER
     Route: 065
     Dates: start: 20140914, end: 20140924
  7. MANNITOL. [Concomitant]
     Active Substance: MANNITOL
  8. MONILAC [Concomitant]
     Active Substance: LACTULOSE
  9. NEOPHAGEN                          /00467204/ [Concomitant]
     Active Substance: CYSTEINE\GLYCINE\GLYCYRRHIZIN
  10. BROTIZOLAM [Concomitant]
     Active Substance: BROTIZOLAM
  11. PREDONINE [Concomitant]
     Active Substance: PREDNISOLONE
  12. SERENACE [Concomitant]
     Active Substance: HALOPERIDOL
  13. PRIMPERAN [Concomitant]
     Active Substance: METOCLOPRAMIDE HYDROCHLORIDE
  14. NEOLAMIN [Concomitant]
  15. SOLDEM 3A [Concomitant]
     Active Substance: CARBOHYDRATES\POTASSIUM CHLORIDE\SODIUM CHLORIDE\SODIUM LACTATE
  16. VITAMEDIN                          /00176001/ [Concomitant]
  17. PYRIDOXINE [Concomitant]
     Active Substance: PYRIDOXINE
  18. LASIX [Concomitant]
     Active Substance: FUROSEMIDE
  19. ULINASTATIN [Concomitant]
     Active Substance: ULINASTATIN
     Indication: PRODUCT USED FOR UNKNOWN INDICATION
     Route: 065
     Dates: start: 20140914, end: 20140924
  20. RISPERIDONE ACCORD [Concomitant]
  21. OMEPRAZOLE. [Concomitant]
     Active Substance: OMEPRAZOLE
  22. THIAMINE. [Concomitant]
     Active Substance: THIAMINE

REACTIONS (2)
  - Pancreatitis [Unknown]
  - Death [Fatal]

NARRATIVE: CASE EVENT DATE: 20140913
